FAERS Safety Report 7869315-9 (Version None)
Quarter: 2011Q4

REPORT INFORMATION
  Report Type: 
  Country: None (occurrence: None)
  Receive Date: 20111028
  Receipt Date: 20101230
  Transmission Date: 20120403
  Serious: No
  Sender: FDA-Public Use
  Company Number: US-AMGEN-USASP2010012399

PATIENT
  Age: 45 Year
  Sex: Female
  Weight: 48.98 kg

DRUGS (2)
  1. ENBREL [Suspect]
     Indication: PRODUCT USED FOR UNKNOWN INDICATION
     Dosage: 50 MG, QWK
  2. METHOTREXATE [Suspect]
     Dosage: 2.5 MG, UNK

REACTIONS (1)
  - DIARRHOEA [None]
